FAERS Safety Report 19924991 (Version 2)
Quarter: 2021Q4

REPORT INFORMATION
  Report Type: Report from Study
  Country: US (occurrence: US)
  Receive Date: 20211006
  Receipt Date: 20211225
  Transmission Date: 20220303
  Serious: No
  Sender: FDA-Public Use
  Company Number: US-NOVARTISTESTPH-NVSC2021US227935

PATIENT
  Age: 48 Year

DRUGS (1)
  1. COSENTYX [Suspect]
     Active Substance: SECUKINUMAB
     Indication: Psoriasis
     Dosage: 300 MG, QW (FOR 5 WEEKS, THEN Q FOUR WEEKS)
     Route: 058
     Dates: start: 20210805

REACTIONS (9)
  - COVID-19 [Unknown]
  - Influenza [Unknown]
  - Nasal congestion [Unknown]
  - Psoriasis [Unknown]
  - Joint swelling [Unknown]
  - Pruritus [Unknown]
  - Peripheral swelling [Unknown]
  - Arthralgia [Unknown]
  - Pain in extremity [Unknown]

NARRATIVE: CASE EVENT DATE: 20210907
